FAERS Safety Report 20245199 (Version 1)
Quarter: 2021Q4

REPORT INFORMATION
  Report Type: Spontaneous
  Country: US (occurrence: US)
  Receive Date: 20211229
  Receipt Date: 20211229
  Transmission Date: 20220303
  Serious: No
  Sender: FDA-Public Use
  Company Number: US-GLENMARK PHARMACEUTICALS-2021GMK068371

PATIENT

DRUGS (4)
  1. IMIQUIMOD [Suspect]
     Active Substance: IMIQUIMOD
     Indication: Skin cancer
     Dosage: UNK, HS (ONCE A DAY AT NIGHT)
     Route: 061
     Dates: start: 20211006
  2. LOSARTAN [Concomitant]
     Active Substance: LOSARTAN
     Indication: Hypertension
     Dosage: UNK, OD
     Route: 048
  3. LASIX [Concomitant]
     Active Substance: FUROSEMIDE
     Indication: Hypertension
     Dosage: UNK, OD
     Route: 048
  4. LASIX [Concomitant]
     Active Substance: FUROSEMIDE
     Indication: Fluid retention

REACTIONS (8)
  - Product use issue [Unknown]
  - Application site discharge [Unknown]
  - Skin weeping [Unknown]
  - Headache [Unknown]
  - Fatigue [Unknown]
  - Application site pain [Unknown]
  - Application site pruritus [Unknown]
  - Application site erythema [Not Recovered/Not Resolved]
